FAERS Safety Report 9423808 (Version 2)
Quarter: 2018Q2

REPORT INFORMATION
  Report Type: Report from Study
  Country: ZA (occurrence: ZA)
  Receive Date: 20130729
  Receipt Date: 20180605
  Transmission Date: 20180711
  Serious: Yes (Death, Hospitalization)
  Sender: FDA-Public Use
  Company Number: ZA-ROCHE-1245124

PATIENT
  Age: 52 Year
  Sex: Male

DRUGS (3)
  1. MIRCERA [Suspect]
     Active Substance: METHOXY POLYETHYLENE GLYCOL-EPOETIN BETA
     Indication: NEPHROGENIC ANAEMIA
     Route: 058
     Dates: start: 201302, end: 201307
  2. MIRCERA [Suspect]
     Active Substance: METHOXY POLYETHYLENE GLYCOL-EPOETIN BETA
     Route: 058
     Dates: start: 201110, end: 201301
  3. VENOFER [Concomitant]
     Active Substance: IRON SUCROSE
     Route: 042

REACTIONS (2)
  - Hypoglycaemia [Unknown]
  - Death [Fatal]

NARRATIVE: CASE EVENT DATE: 20130629
